FAERS Safety Report 23651928 (Version 1)
Quarter: 2024Q1

REPORT INFORMATION
  Report Type: Spontaneous
  Country: ES (occurrence: None)
  Receive Date: 20240320
  Receipt Date: 20240320
  Transmission Date: 20240410
  Serious: Yes (Hospitalization)
  Sender: FDA-Public Use
  Company Number: ES-ROCHE-3524445

PATIENT
  Age: 27 Year
  Sex: Female

DRUGS (1)
  1. OCRELIZUMAB [Suspect]
     Active Substance: OCRELIZUMAB
     Indication: Multiple sclerosis
     Route: 065
     Dates: start: 2019

REACTIONS (6)
  - Urinary tract infection [Unknown]
  - COVID-19 pneumonia [Unknown]
  - Gastroenteritis clostridial [Unknown]
  - Weight decreased [Unknown]
  - Bladder pain [Unknown]
  - Cystitis [Unknown]

NARRATIVE: CASE EVENT DATE: 20230101
